FAERS Safety Report 24427182 (Version 4)
Quarter: 2025Q3

REPORT INFORMATION
  Report Type: Report from Study
  Country: US (occurrence: US)
  Receive Date: 20241011
  Receipt Date: 20250802
  Transmission Date: 20251021
  Serious: Yes (Other)
  Sender: ALEXION PHARMACEUTICALS
  Company Number: US-AstraZeneca-CH-00719154A

PATIENT
  Age: 49 Year
  Sex: Female
  Weight: 59.9 kg

DRUGS (11)
  1. TEZEPELUMAB [Suspect]
     Active Substance: TEZEPELUMAB
     Indication: Asthma
     Dosage: 210 MILLIGRAM, Q4W
     Dates: start: 202403
  2. TEZEPELUMAB [Suspect]
     Active Substance: TEZEPELUMAB
  3. AIRSUPRA [Concomitant]
     Active Substance: ALBUTEROL SULFATE\BUDESONIDE
  4. PREDNISONE [Concomitant]
     Active Substance: PREDNISONE
  5. ALBUTEROL [Concomitant]
     Active Substance: ALBUTEROL
  6. BENZONATATE [Concomitant]
     Active Substance: BENZONATATE
  7. BUPROPION [Concomitant]
     Active Substance: BUPROPION
  8. FLUTICASONE [Concomitant]
     Active Substance: FLUTICASONE
  9. IPRATROPIUM [Concomitant]
     Active Substance: IPRATROPIUM
  10. METHYLPHENIDATE [Concomitant]
     Active Substance: METHYLPHENIDATE
  11. TEZEPELUMAB [Concomitant]
     Active Substance: TEZEPELUMAB

REACTIONS (1)
  - Pneumonitis [Unknown]
